FAERS Safety Report 8322094-3 (Version None)
Quarter: 2012Q2

REPORT INFORMATION
  Report Type: 
  Country: None (occurrence: None)
  Receive Date: 20120430
  Receipt Date: 20120419
  Transmission Date: 20120825
  Serious: Yes (Hospitalization)
  Sender: FDA-Public Use
  Company Number: IE-ROCHE-1049079

PATIENT
  Sex: Female

DRUGS (5)
  1. PHYLLOCONTIN [Concomitant]
  2. VENTOLIN [Concomitant]
  3. XOLAIR [Suspect]
     Indication: ASTHMA
     Route: 065
     Dates: start: 20111027
  4. ATROVENT [Concomitant]
  5. PREDNISOLONE [Concomitant]

REACTIONS (1)
  - ASTHMA [None]
